FAERS Safety Report 17729028 (Version 1)
Quarter: 2020Q2

REPORT INFORMATION
  Report Type: Report from Study
  Country: CA (occurrence: CA)
  Receive Date: 20200430
  Receipt Date: 20200430
  Transmission Date: 20200714
  Serious: Yes (Other)
  Sender: FDA-Public Use
  Company Number: CA-ROCHE-2579326

PATIENT
  Age: 44 Year
  Sex: Female

DRUGS (3)
  1. DIPHENHYDRAMINE. [Concomitant]
     Active Substance: DIPHENHYDRAMINE
     Indication: PREMEDICATION
     Dosage: DRUG DOSE FIRST ADMINISTERED WAS 50 MG MILLIGRAM(S)
     Route: 048
     Dates: start: 20200402
  2. RITUXAN [Suspect]
     Active Substance: RITUXIMAB
     Indication: IMMUNE THROMBOCYTOPENIA
     Dosage: DRUG DOSE FIRST ADMINISTERED WAS 580 MG MILLIGRAM(S)
     Route: 042
     Dates: start: 20200402
  3. ACETAMINOPHEN. [Concomitant]
     Active Substance: ACETAMINOPHEN
     Indication: PREMEDICATION
     Dosage: DRUG DOSE FIRST ADMINISTERED WAS 650 MG MILLIGRAM(S)
     Route: 048
     Dates: start: 20200402

REACTIONS (10)
  - Nausea [Unknown]
  - Pyrexia [Unknown]
  - Viral infection [Unknown]
  - Respiratory rate increased [Unknown]
  - Off label use [Unknown]
  - Syncope [Unknown]
  - Blood pressure diastolic abnormal [Unknown]
  - Rash [Unknown]
  - Heart rate increased [Unknown]
  - Intentional product use issue [Unknown]

NARRATIVE: CASE EVENT DATE: 20200415
